FAERS Safety Report 25671832 (Version 1)
Quarter: 2025Q3

REPORT INFORMATION
  Report Type: Spontaneous
  Country: MX (occurrence: MX)
  Receive Date: 20250812
  Receipt Date: 20250812
  Transmission Date: 20251021
  Serious: Yes (Other)
  Sender: ALEXION PHARMACEUTICALS
  Company Number: MX-AstraZeneca-CH-00928066A

PATIENT
  Age: 66 Year
  Sex: Female
  Weight: 78 kg

DRUGS (5)
  1. PULMICORT TURBUHALER [Suspect]
     Active Substance: BUDESONIDE
     Indication: Pulmonary embolism
     Route: 065
  2. BUDESONIDE\FORMOTEROL\GLYCOPYRRONIUM [Suspect]
     Active Substance: BUDESONIDE\FORMOTEROL\GLYCOPYRRONIUM
     Indication: Bronchiectasis
     Dosage: 2 DOSAGE FORM, BID (TWO PUFFS IN THE MORNING, AND TWO PUFFS AT NIGHT)
     Route: 065
     Dates: start: 202505
  3. Coriatros [Concomitant]
     Indication: Hypertension
     Dosage: 16 MILLIGRAM, QD
     Dates: start: 2022
  4. SERTRALINE [Concomitant]
     Active Substance: SERTRALINE HYDROCHLORIDE
     Indication: Depression
     Dosage: 50 MILLIGRAM, QD
     Dates: start: 2016
  5. PANTOPRAZOLE SODIUM [Concomitant]
     Active Substance: PANTOPRAZOLE SODIUM
     Indication: Gastritis
     Dosage: 20 MILLIGRAM, BID

REACTIONS (7)
  - Pulmonary embolism [Unknown]
  - Cough [Unknown]
  - Productive cough [Unknown]
  - Off label use [Unknown]
  - Hypertension [Unknown]
  - Peripheral swelling [Unknown]
  - Bronchiectasis [Unknown]

NARRATIVE: CASE EVENT DATE: 20250701
